FAERS Safety Report 9230857 (Version 2)
Quarter: 2013Q2

REPORT INFORMATION
  Report Type: Spontaneous
  Country: PH (occurrence: PH)
  Receive Date: 20130415
  Receipt Date: 20130627
  Transmission Date: 20140414
  Serious: Yes (Hospitalization)
  Sender: FDA-Public Use
  Company Number: PHHY2013PH028036

PATIENT
  Age: 38 Year
  Sex: Male
  Weight: 77 kg

DRUGS (12)
  1. NEORAL [Suspect]
     Indication: IMMUNOSUPPRESSION
     Dosage: 7 MG/KG QD
     Route: 048
     Dates: start: 20130115
  2. NEORAL [Suspect]
     Dosage: 25 MG/KG QD
     Route: 048
     Dates: end: 20130309
  3. CERTICAN [Suspect]
     Indication: NEPHROPATHY TOXIC
     Dosage: 0.75 MG, BID
     Route: 048
     Dates: start: 20130309
  4. CERTICAN [Suspect]
     Dosage: 1.25 MG IN AM AND 1.0 IN PM
     Route: 048
  5. MYCOPHENOLATE [Suspect]
     Dosage: UNK
  6. IMMUNOSUPPRESSANTS [Concomitant]
  7. CALCIUM [Concomitant]
  8. VITAMIN D3 [Concomitant]
  9. MEROPENEM [Concomitant]
  10. CEFIX//CEFIXIME [Concomitant]
     Route: 042
  11. PREDNISONE [Concomitant]
  12. CICLOSPORIN [Concomitant]

REACTIONS (12)
  - Arteritis [Unknown]
  - Inflammation [Unknown]
  - Renal tubular disorder [Unknown]
  - Renal tubular necrosis [Unknown]
  - Kidney transplant rejection [Not Recovered/Not Resolved]
  - Oedema [Unknown]
  - Urine output decreased [Unknown]
  - Polyomavirus-associated nephropathy [Unknown]
  - Pulmonary tuberculosis [Unknown]
  - BK virus infection [Unknown]
  - Pneumonia [Unknown]
  - Pyrexia [Unknown]
